FAERS Safety Report 13694183 (Version 1)
Quarter: 2017Q2

REPORT INFORMATION
  Report Type: Spontaneous
  Country: US (occurrence: US)
  Receive Date: 20170626
  Receipt Date: 20170626
  Transmission Date: 20170830
  Serious: No
  Sender: FDA-Public Use
  Company Number: None

PATIENT
  Age: 63 Year
  Sex: Female

DRUGS (6)
  1. LEVETIRACETA [Concomitant]
  2. METFORMIN [Concomitant]
     Active Substance: METFORMIN HYDROCHLORIDE
  3. OCALIVA [Suspect]
     Active Substance: OBETICHOLIC ACID
     Indication: BILIARY CIRRHOSIS PRIMARY
     Route: 048
     Dates: start: 20170323, end: 201705
  4. GABAPENTIN. [Concomitant]
     Active Substance: GABAPENTIN
  5. LANTUS [Concomitant]
     Active Substance: INSULIN GLARGINE
  6. URSODIOL. [Concomitant]
     Active Substance: URSODIOL

REACTIONS (4)
  - Diarrhoea [None]
  - Hyperhidrosis [None]
  - Pruritus generalised [None]
  - Nausea [None]

NARRATIVE: CASE EVENT DATE: 20170413
